FAERS Safety Report 16797809 (Version 1)
Quarter: 2019Q3

REPORT INFORMATION
  Report Type: Spontaneous
  Country: US (occurrence: US)
  Receive Date: 20190912
  Receipt Date: 20190912
  Transmission Date: 20191005
  Serious: No
  Sender: FDA-Public Use
  Company Number: US-STRIDES ARCOLAB LIMITED-2019SP008208

PATIENT
  Age: 27 Year
  Sex: Female

DRUGS (8)
  1. BUPIVACAINE. [Suspect]
     Active Substance: BUPIVACAINE
     Indication: PRODUCT USED FOR UNKNOWN INDICATION
     Dosage: UNK
     Route: 065
  2. POTASSIUM CHLORIDE. [Suspect]
     Active Substance: POTASSIUM CHLORIDE
     Indication: BLOOD POTASSIUM DECREASED
     Dosage: 20 MEQ, SINGLE
     Route: 048
  3. EPINEPHRINE. [Suspect]
     Active Substance: EPINEPHRINE
     Indication: PRODUCT USED FOR UNKNOWN INDICATION
     Dosage: UNK, INFUSION
     Route: 008
  4. POTASSIUM CHLORIDE. [Suspect]
     Active Substance: POTASSIUM CHLORIDE
     Indication: MUSCULAR WEAKNESS
     Dosage: 20 MEQ, DAILY
     Route: 048
  5. FENTANYL. [Suspect]
     Active Substance: FENTANYL
     Indication: PRODUCT USED FOR UNKNOWN INDICATION
     Dosage: UNK
     Route: 065
  6. FENTANYL. [Suspect]
     Active Substance: FENTANYL
     Dosage: UNK
     Route: 008
  7. BUPIVACAINE. [Suspect]
     Active Substance: BUPIVACAINE
     Dosage: UNK, INFUSION
     Route: 008
  8. LIDOCAINE. [Suspect]
     Active Substance: LIDOCAINE
     Indication: PRODUCT USED FOR UNKNOWN INDICATION
     Dosage: 3 ML, SINGLE
     Route: 065

REACTIONS (1)
  - Exposure during pregnancy [Unknown]
